FAERS Safety Report 19657532 (Version 7)
Quarter: 2025Q2

REPORT INFORMATION
  Report Type: Spontaneous
  Country: US (occurrence: US)
  Receive Date: 20210804
  Receipt Date: 20250519
  Transmission Date: 20250717
  Serious: Yes (Other)
  Sender: PFIZER
  Company Number: US-PFIZER INC-202100941238

PATIENT
  Age: 40 Year
  Sex: Male
  Weight: 73 kg

DRUGS (1)
  1. XYNTHA [Suspect]
     Active Substance: MOROCTOCOG ALFA
     Indication: Factor VIII deficiency
     Route: 042

REACTIONS (9)
  - Haemophilic arthropathy [Unknown]
  - Haemorrhage [Not Recovered/Not Resolved]
  - Knee operation [Unknown]
  - Diabetes mellitus [Unknown]
  - Arthroscopy [Unknown]
  - Knee deformity [Unknown]
  - Illness [Unknown]
  - Discomfort [Unknown]
  - Blood cholesterol increased [Unknown]

NARRATIVE: CASE EVENT DATE: 20241231
